FAERS Safety Report 9049583 (Version 1)
Quarter: 2013Q1

REPORT INFORMATION
  Report Type: Spontaneous
  Country: US (occurrence: US)
  Receive Date: 20130205
  Receipt Date: 20130205
  Transmission Date: 20140127
  Serious: Yes (Other)
  Sender: FDA-Public Use
  Company Number: US-ASTRAZENECA-2013SE07016

PATIENT
  Sex: Female

DRUGS (1)
  1. NEXIUM [Suspect]
     Dosage: BID
     Route: 048

REACTIONS (3)
  - Spinal fracture [Unknown]
  - Fall [Unknown]
  - Gastrooesophageal reflux disease [Unknown]
